FAERS Safety Report 10159779 (Version 1)
Quarter: 2014Q2

REPORT INFORMATION
  Report Type: Spontaneous
  Country: US (occurrence: US)
  Receive Date: 20140508
  Receipt Date: 20140508
  Transmission Date: 20141212
  Serious: Yes (Other)
  Sender: FDA-Public Use
  Company Number: US-PFIZER INC-2014125075

PATIENT
  Age: 67 Year
  Sex: Female
  Weight: 79.82 kg

DRUGS (1)
  1. NEURONTIN [Suspect]
     Indication: NEURALGIA
     Dosage: 300 MG, DAILY

REACTIONS (12)
  - Haemorrhage [Unknown]
  - Weight decreased [Unknown]
  - Hypertension [Unknown]
  - Fatigue [Unknown]
  - Swelling [Unknown]
  - Myalgia [Unknown]
  - Infection [Unknown]
  - Contusion [Unknown]
  - Lip swelling [Unknown]
  - Lip pain [Unknown]
  - Headache [Unknown]
  - Insomnia [Unknown]
